FAERS Safety Report 8609006-X (Version None)
Quarter: 2012Q3

REPORT INFORMATION
  Report Type: 
  Country: None (occurrence: None)
  Receive Date: 20120821
  Receipt Date: 20071025
  Transmission Date: 20120928
  Serious: Yes (Other)
  Sender: FDA-Public Use
  Company Number: JP-VIIV HEALTHCARE LIMITED-B0493139A

PATIENT
  Age: 7 Decade
  Sex: Male
  Weight: 65 kg

DRUGS (14)
  1. LEXIVA [Concomitant]
     Indication: HIV INFECTION
     Dosage: 2800MG PER DAY
     Route: 048
     Dates: start: 20060905, end: 20110418
  2. EPADEL [Concomitant]
     Indication: HYPERLIPIDAEMIA
     Dosage: 1800MG PER DAY
     Route: 048
     Dates: start: 20120215
  3. ISENTRESS [Suspect]
     Indication: HIV INFECTION
     Dosage: 800MG PER DAY
     Route: 048
     Dates: start: 20110419
  4. ZERIT [Concomitant]
     Dosage: 60MG PER DAY
     Route: 048
     Dates: start: 20060905, end: 20110418
  5. PRAVASTATIN SODIUM [Concomitant]
     Indication: HYPERLIPIDAEMIA
     Dosage: 5MG PER DAY
     Route: 048
     Dates: start: 20120215
  6. ZITHROMAX [Concomitant]
     Indication: OPPORTUNISTIC INFECTION PROPHYLAXIS
     Route: 048
     Dates: start: 20060620, end: 20070201
  7. EPIVIR [Suspect]
     Indication: HIV INFECTION
     Dosage: 300MG PER DAY
     Route: 048
     Dates: start: 20060607, end: 20060620
  8. ZERIT [Concomitant]
     Indication: HIV INFECTION
     Dosage: 60MG PER DAY
     Route: 048
     Dates: start: 20060607, end: 20060620
  9. NORVIR [Concomitant]
     Indication: HIV INFECTION
     Dosage: 100MG PER DAY
     Route: 048
     Dates: start: 20060607, end: 20060620
  10. REYATAZ [Concomitant]
     Indication: HIV INFECTION
     Dosage: 300MG PER DAY
     Route: 048
     Dates: start: 20060607, end: 20060620
  11. ADALAT [Concomitant]
     Indication: CEREBRAL INFARCTION
     Dosage: 20MG PER DAY
     Route: 048
     Dates: start: 20110401
  12. PERSANTINE [Concomitant]
     Indication: CEREBRAL INFARCTION
     Dosage: 300MG PER DAY
     Route: 048
     Dates: start: 20110401
  13. ZIAGEN [Suspect]
     Indication: HIV INFECTION
     Dosage: 600MG PER DAY
     Route: 048
     Dates: start: 20110419
  14. EPIVIR [Suspect]
     Dosage: 300MG PER DAY
     Route: 048
     Dates: start: 20060905

REACTIONS (1)
  - RENAL IMPAIRMENT [None]
